FAERS Safety Report 17498908 (Version 2)
Quarter: 2020Q1

REPORT INFORMATION
  Report Type: Report from Study
  Country: US (occurrence: US)
  Receive Date: 20200304
  Receipt Date: 20200311
  Transmission Date: 20200409
  Serious: Yes (Death, Hospitalization)
  Sender: FDA-Public Use
  Company Number: NVSC2020US060102

PATIENT
  Age: 59 Year
  Sex: Female
  Weight: 51 kg

DRUGS (2)
  1. TRAMETINIB [Suspect]
     Active Substance: TRAMETINIB
     Indication: PANCREATIC CARCINOMA
     Dosage: 2 MG, QD
     Route: 048
     Dates: start: 20200117
  2. HYDROXYCHLOROQUINE SULFATE. [Suspect]
     Active Substance: HYDROXYCHLOROQUINE SULFATE
     Indication: PANCREATIC CARCINOMA
     Dosage: 600 MG, BID
     Route: 048
     Dates: start: 20200117

REACTIONS (1)
  - Respiratory failure [Fatal]

NARRATIVE: CASE EVENT DATE: 20200226
